FAERS Safety Report 9102125 (Version 1)
Quarter: 2013Q1

REPORT INFORMATION
  Report Type: Spontaneous
  Country: US (occurrence: US)
  Receive Date: 20130218
  Receipt Date: 20130218
  Transmission Date: 20140127
  Serious: Yes (Death)
  Sender: FDA-Public Use
  Company Number: US-COVIDIEN/TYCO HEALTHCARE/MALLINCKRODT-T201300442

PATIENT
  Age: 27 Year
  Sex: Male

DRUGS (6)
  1. MORPHINE [Suspect]
     Dosage: UNK
  2. HYDROMORPHONE [Suspect]
     Dosage: UNK
  3. TEMAZEPAM [Suspect]
     Dosage: UNK
  4. OXAZEPAM [Suspect]
     Dosage: UNK
  5. ALPRAZOLAM [Suspect]
     Dosage: UNK
  6. CANNABIS SATIVA SUBSP. INDICA TOP [Suspect]
     Dosage: UNK

REACTIONS (1)
  - Drug abuse [Fatal]
